FAERS Safety Report 8977556 (Version 4)
Quarter: 2016Q3

REPORT INFORMATION
  Report Type: Spontaneous
  Country: US (occurrence: US)
  Receive Date: 20121219
  Receipt Date: 20160805
  Transmission Date: 20161109
  Serious: Yes (Hospitalization, Disabling, Other)
  Sender: FDA-Public Use
  Company Number: US-JNJFOC-20101206012

PATIENT
  Sex: Male
  Weight: 75.75 kg

DRUGS (7)
  1. LEVAQUIN [Suspect]
     Active Substance: LEVOFLOXACIN
     Indication: ASTHMA
     Route: 048
     Dates: start: 200807, end: 200807
  2. STEROIDS NOS [Suspect]
     Active Substance: UNSPECIFIED INGREDIENT
     Indication: ASTHMA
     Route: 065
  3. PREDNISONE. [Suspect]
     Active Substance: PREDNISONE
     Indication: COUGH
     Route: 048
  4. NIACIN. [Concomitant]
     Active Substance: NIACIN
     Indication: ROUTINE HEALTH MAINTENANCE
     Route: 065
  5. ZOCOR [Concomitant]
     Active Substance: SIMVASTATIN
     Indication: BLOOD CHOLESTEROL INCREASED
     Route: 065
  6. ALL OTHER THERAPEUTIC PRODUCTS [Concomitant]
     Active Substance: UNSPECIFIED INGREDIENT
     Indication: HYPERTENSION
     Route: 065
  7. LEVAQUIN [Suspect]
     Active Substance: LEVOFLOXACIN
     Indication: RESPIRATORY TRACT INFECTION
     Route: 048
     Dates: start: 200807, end: 200807

REACTIONS (9)
  - Tendon rupture [Unknown]
  - Tendon rupture [Unknown]
  - Neck pain [Unknown]
  - Hernia [Unknown]
  - Bursitis [Unknown]
  - Back pain [Unknown]
  - Gait disturbance [Unknown]
  - Hypokinesia [Unknown]
  - Tendon disorder [Unknown]

NARRATIVE: CASE EVENT DATE: 2008
